FAERS Safety Report 14573627 (Version 1)
Quarter: 2018Q1

REPORT INFORMATION
  Report Type: Spontaneous
  Country: US (occurrence: US)
  Receive Date: 20180226
  Receipt Date: 20180226
  Transmission Date: 20180509
  Serious: No
  Sender: FDA-Public Use
  Company Number: US-TEVA-2018-US-865099

PATIENT
  Age: 42 Year
  Sex: Female

DRUGS (7)
  1. AUSTEDO [Suspect]
     Active Substance: DEUTETRABENAZINE
     Dosage: 6 MILLIGRAM DAILY; STARTED 6 MG QD IN OCTOBER 11
     Route: 065
     Dates: start: 20171011
  2. TRENTILLIX [Concomitant]
  3. TOPIRAMATE. [Concomitant]
     Active Substance: TOPIRAMATE
     Dosage: STARTED ON 21/12
     Dates: start: 20171221
  4. AUSTEDO [Suspect]
     Active Substance: DEUTETRABENAZINE
     Dosage: 18 MILLIGRAM DAILY; 9 MG BID NOVEMBER 3RD
     Route: 065
     Dates: start: 20171103
  5. LAMICTAL [Concomitant]
     Active Substance: LAMOTRIGINE
  6. RISPERIDONE. [Concomitant]
     Active Substance: RISPERIDONE
     Dosage: DECREASED ABOUT 21/12/17 THEN INCREASED 23/1/17
  7. AUSTEDO [Suspect]
     Active Substance: DEUTETRABENAZINE
     Dosage: 12 MILLIGRAM DAILY; CURRENTLY TAKING 12 MG AT NIGHT EVERY DAY
     Route: 065

REACTIONS (2)
  - Gait disturbance [Unknown]
  - Motor dysfunction [Unknown]

NARRATIVE: CASE EVENT DATE: 201712
